FAERS Safety Report 4471814-7 (Version None)
Quarter: 2004Q4

REPORT INFORMATION
  Report Type: 
  Country: None (occurrence: None)
  Receive Date: 20041007
  Receipt Date: 20040929
  Transmission Date: 20050328
  Serious: Yes (Other)
  Sender: FDA-Public Use
  Company Number: STA-AE-04-MTX-461

PATIENT
  Age: 68 Year
  Sex: Female

DRUGS (3)
  1. RHEUMATREX [Suspect]
     Indication: RHEUMATOID ARTHRITIS
     Dosage: 6 MG 1X PER 1 WK, ORAL
     Route: 048
     Dates: start: 20000101, end: 20040710
  2. MOBIC [Concomitant]
  3. UNSPECIFIED ANTI-INFLAMMATORY AGENT [Concomitant]

REACTIONS (5)
  - ANOREXIA [None]
  - BONE MARROW DEPRESSION [None]
  - PYREXIA [None]
  - RENAL IMPAIRMENT [None]
  - SWELLING [None]
